FAERS Safety Report 9445562 (Version 1)
Quarter: 2013Q3

REPORT INFORMATION
  Report Type: Spontaneous
  Country: RU (occurrence: RU)
  Receive Date: 20130807
  Receipt Date: 20130807
  Transmission Date: 20140515
  Serious: Yes (Death, Life-Threatening, Hospitalization, Other)
  Sender: FDA-Public Use
  Company Number: RU-ROCHE-1256846

PATIENT
  Age: 39 Year
  Sex: Female

DRUGS (4)
  1. HERCEPTIN [Suspect]
     Indication: BREAST CANCER
     Route: 065
  2. HERCEPTIN [Suspect]
     Route: 065
     Dates: end: 201204
  3. CAPECITABINE [Suspect]
     Indication: BREAST CANCER
     Route: 065
  4. DOCETAXEL [Concomitant]
     Dosage: 1 DAY
     Route: 065

REACTIONS (8)
  - Disease progression [Fatal]
  - Haematotoxicity [Unknown]
  - Hepatic failure [Unknown]
  - Gastrointestinal disorder [Unknown]
  - Diarrhoea [Unknown]
  - Proctitis [Unknown]
  - Gastritis [Unknown]
  - Duodenitis [Unknown]
